FAERS Safety Report 4832284-X (Version None)
Quarter: 2005Q4

REPORT INFORMATION
  Report Type: 
  Country: None (occurrence: None)
  Receive Date: 20051116
  Receipt Date: 20051116
  Transmission Date: 20060501
  Serious: Yes (Other)
  Sender: FDA-Public Use
  Company Number: None

PATIENT
  Sex: Female
  Weight: 47.8545 kg

DRUGS (2)
  1. METRONIDAZOLE [Suspect]
     Indication: TRICHOMONIASIS
     Dosage: ONE TAB BID X7 D
  2. FLAGYL [Suspect]

REACTIONS (1)
  - DRUG HYPERSENSITIVITY [None]
